FAERS Safety Report 9899875 (Version 2)
Quarter: 2014Q1

REPORT INFORMATION
  Report Type: Spontaneous
  Country: US (occurrence: US)
  Receive Date: 20140214
  Receipt Date: 20140319
  Transmission Date: 20141002
  Serious: Yes (Life-Threatening, Hospitalization, Other)
  Sender: FDA-Public Use
  Company Number: US-ELI_LILLY_AND_COMPANY-US201402004218

PATIENT
  Age: 43 Year
  Sex: Female

DRUGS (1)
  1. HUMALOG LISPRO [Suspect]
     Indication: PRODUCT USED FOR UNKNOWN INDICATION
     Dosage: UNK
     Route: 058

REACTIONS (5)
  - Dyspnoea [Unknown]
  - Loss of consciousness [Recovered/Resolved]
  - Diabetic ketoacidosis [Unknown]
  - Renal impairment [Not Recovered/Not Resolved]
  - Blood glucose decreased [Unknown]
